FAERS Safety Report 23107482 (Version 2)
Quarter: 2023Q4

REPORT INFORMATION
  Report Type: Spontaneous
  Country: GB (occurrence: GB)
  Receive Date: 20231026
  Receipt Date: 20231107
  Transmission Date: 20240110
  Serious: Yes (Death, Life-Threatening, Other)
  Sender: FDA-Public Use
  Company Number: None

PATIENT

DRUGS (2)
  1. PREDNISOLONE [Suspect]
     Active Substance: PREDNISOLONE
     Dosage: UNK (PREDNISOLONE 5MG TABLETS)
  2. TACROLIMUS [Suspect]
     Active Substance: TACROLIMUS
     Dosage: UNK ADOPORT 1MG CAPSULES

REACTIONS (1)
  - Death [Fatal]
